FAERS Safety Report 15151746 (Version 4)
Quarter: 2018Q3

REPORT INFORMATION
  Report Type: Report from Study
  Country: US (occurrence: US)
  Receive Date: 20180716
  Receipt Date: 20180823
  Transmission Date: 20181010
  Serious: Yes (Hospitalization, Other)
  Sender: FDA-Public Use
  Company Number: US-ALEXION PHARMACEUTICALS INC.-A201809000

PATIENT
  Sex: Female

DRUGS (2)
  1. SOLIRIS [Suspect]
     Active Substance: ECULIZUMAB
     Dosage: UNK
     Route: 065
     Dates: end: 20180810
  2. SOLIRIS [Suspect]
     Active Substance: ECULIZUMAB
     Indication: MYASTHENIA GRAVIS
     Dosage: UNK
     Route: 065

REACTIONS (14)
  - Dry mouth [Unknown]
  - Fatigue [Unknown]
  - Paraesthesia oral [Unknown]
  - Dysphagia [Unknown]
  - Tongue dry [Unknown]
  - Drug ineffective [Unknown]
  - Vocal cord inflammation [Not Recovered/Not Resolved]
  - Mastication disorder [Unknown]
  - Lip exfoliation [Unknown]
  - Hypokinesia [Unknown]
  - Amnesia [Unknown]
  - Dysarthria [Unknown]
  - Dehydration [Unknown]
  - Condition aggravated [Unknown]

NARRATIVE: CASE EVENT DATE: 20180719
